FAERS Safety Report 6170208-6 (Version None)
Quarter: 2009Q2

REPORT INFORMATION
  Report Type: 
  Country: None (occurrence: None)
  Receive Date: 20090428
  Receipt Date: 20090416
  Transmission Date: 20091009
  Serious: Yes (Other)
  Sender: FDA-Public Use
  Company Number: PHHY2009US14522

PATIENT
  Sex: Male
  Weight: 3.3 kg

DRUGS (2)
  1. OCTREOTIDE ACETATE [Suspect]
     Route: 064
  2. OCTREOTIDE ACETATE [Suspect]
     Dosage: MATERNAL DOSE: 25 UG/H
     Route: 064

REACTIONS (2)
  - DRUG EXPOSURE DURING PREGNANCY [None]
  - TACHYCARDIA FOETAL [None]
